FAERS Safety Report 18370149 (Version 3)
Quarter: 2021Q3

REPORT INFORMATION
  Report Type: Report from Study
  Country: US (occurrence: US)
  Receive Date: 20201012
  Receipt Date: 20210811
  Transmission Date: 20211014
  Serious: Yes (Other)
  Sender: FDA-Public Use
  Company Number: US-SHIRE-US202033129

PATIENT
  Sex: Female
  Weight: 54 kg

DRUGS (31)
  1. TEDUGLUTIDE [Suspect]
     Active Substance: TEDUGLUTIDE
     Indication: CROHN^S DISEASE
     Dosage: UNK, QD
     Route: 058
     Dates: start: 20190522
  2. TEDUGLUTIDE [Suspect]
     Active Substance: TEDUGLUTIDE
     Indication: CROHN^S DISEASE
     Dosage: UNK, QD
     Route: 058
     Dates: start: 20190522
  3. TEDUGLUTIDE [Suspect]
     Active Substance: TEDUGLUTIDE
     Dosage: 0.27 MILLILITER, QD
     Route: 058
     Dates: end: 202101
  4. TEDUGLUTIDE [Suspect]
     Active Substance: TEDUGLUTIDE
     Dosage: 0.27 MILLILITER, QOD
     Route: 058
     Dates: start: 202101
  5. METHIMAZOLE. [Concomitant]
     Active Substance: METHIMAZOLE
     Dosage: 100 PERCENT
  6. LACTATED RINGERS SOLUTION [Concomitant]
     Active Substance: CALCIUM CHLORIDE\POTASSIUM CHLORIDE\SODIUM CHLORIDE\SODIUM LACTATE
     Route: 042
  7. TEDUGLUTIDE [Suspect]
     Active Substance: TEDUGLUTIDE
     Dosage: 0.27 MILLILITER, QOD
     Route: 058
     Dates: start: 20190522
  8. METOPROLOL SUCCINATE. [Concomitant]
     Active Substance: METOPROLOL SUCCINATE
  9. TEDUGLUTIDE [Suspect]
     Active Substance: TEDUGLUTIDE
     Dosage: 0.27 MILLILITER, QD
     Route: 058
     Dates: end: 202101
  10. VITAMIN D3 [Concomitant]
     Active Substance: CHOLECALCIFEROL
     Dosage: 1000 GRAM
     Route: 065
  11. TEDUGLUTIDE [Suspect]
     Active Substance: TEDUGLUTIDE
     Indication: CROHN^S DISEASE
     Dosage: UNK, QD
     Route: 058
     Dates: start: 20190522
  12. TEDUGLUTIDE [Suspect]
     Active Substance: TEDUGLUTIDE
     Dosage: 0.27 MILLILITER, QOD
     Route: 058
     Dates: start: 202101
  13. TEDUGLUTIDE [Suspect]
     Active Substance: TEDUGLUTIDE
     Dosage: 0.27 MILLILITER, QOD
     Route: 058
     Dates: start: 202101
  14. ZINC. [Concomitant]
     Active Substance: ZINC
     Dosage: 66 MILLIGRAM
     Route: 065
  15. VITAMIN C [Concomitant]
     Active Substance: ASCORBIC ACID
     Dosage: 1000 MILLIGRAM
     Route: 065
  16. TEDUGLUTIDE [Suspect]
     Active Substance: TEDUGLUTIDE
     Dosage: 0.27 MILLILITER, QD
     Route: 058
  17. TEDUGLUTIDE [Suspect]
     Active Substance: TEDUGLUTIDE
     Dosage: 0.27 MILLILITER, QD
     Route: 058
  18. TEDUGLUTIDE [Suspect]
     Active Substance: TEDUGLUTIDE
     Dosage: 0.27 MILLILITER, QOD
     Route: 058
     Dates: start: 20190522
  19. STELARA [Concomitant]
     Active Substance: USTEKINUMAB
     Dosage: 90 MG/1 ML PFS
     Route: 065
  20. VITAMIN D3 [Concomitant]
     Active Substance: CHOLECALCIFEROL
     Dosage: 100000/GRAM
  21. TEDUGLUTIDE [Suspect]
     Active Substance: TEDUGLUTIDE
     Dosage: 0.27 MILLILITER, QD
     Route: 058
  22. TEDUGLUTIDE [Suspect]
     Active Substance: TEDUGLUTIDE
     Dosage: 0.27 MILLILITER, QD
     Route: 058
  23. TEDUGLUTIDE [Suspect]
     Active Substance: TEDUGLUTIDE
     Dosage: 0.27 MILLILITER, QOD
     Route: 058
     Dates: start: 202101
  24. TEDUGLUTIDE [Suspect]
     Active Substance: TEDUGLUTIDE
     Dosage: 0.27 MILLILITER, QOD
     Route: 058
     Dates: start: 20190522
  25. TEDUGLUTIDE [Suspect]
     Active Substance: TEDUGLUTIDE
     Dosage: 0.27 MILLILITER, QD
     Route: 058
     Dates: end: 202101
  26. BIOTIN [Concomitant]
     Active Substance: BIOTIN
     Dosage: 1000 PERCENT
  27. CIMETIDINE [Concomitant]
     Active Substance: CIMETIDINE
  28. TEDUGLUTIDE [Suspect]
     Active Substance: TEDUGLUTIDE
     Indication: CROHN^S DISEASE
     Dosage: UNK, QD
     Route: 058
     Dates: start: 20190522
  29. TEDUGLUTIDE [Suspect]
     Active Substance: TEDUGLUTIDE
     Dosage: 0.27 MILLILITER, QOD
     Route: 058
     Dates: start: 20190522
  30. TEDUGLUTIDE [Suspect]
     Active Substance: TEDUGLUTIDE
     Dosage: 0.27 MILLILITER, QD
     Route: 058
     Dates: end: 202101
  31. VITAMIN B12 [Concomitant]
     Active Substance: CYANOCOBALAMIN
     Dosage: 25000 MICROGRAM
     Route: 065

REACTIONS (8)
  - Device related thrombosis [Unknown]
  - Hot flush [Not Recovered/Not Resolved]
  - Muscular weakness [Unknown]
  - Headache [Not Recovered/Not Resolved]
  - Flatulence [Unknown]
  - Sepsis [Unknown]
  - Alopecia [Unknown]
  - Weight increased [Unknown]
